FAERS Safety Report 19115336 (Version 1)
Quarter: 2021Q2

REPORT INFORMATION
  Report Type: Spontaneous
  Country: US (occurrence: US)
  Receive Date: 20210409
  Receipt Date: 20210409
  Transmission Date: 20210717
  Serious: Yes (Other)
  Sender: FDA-Public Use
  Company Number: US-CATALYST PHARMACEUTICALS, INC-2021CAT00132

PATIENT
  Age: 56 Year
  Sex: Male
  Weight: 72.56 kg

DRUGS (3)
  1. FIRDAPSE [Suspect]
     Active Substance: AMIFAMPRIDINE PHOSPHATE
     Indication: MYASTHENIC SYNDROME
     Dosage: 5 MG, 3X/DAY
     Route: 048
     Dates: start: 202102
  2. A BUNCH OF UNSPECIFIED MEDICATIONS [Concomitant]
  3. RADIATION [Suspect]
     Active Substance: RADIATION THERAPY
     Indication: SMALL CELL LUNG CANCER
     Dosage: UNK
     Dates: start: 202103

REACTIONS (5)
  - Dehydration [Recovered/Resolved]
  - Throat irritation [Not Recovered/Not Resolved]
  - Eosinophil count decreased [Unknown]
  - Feeding disorder [Not Recovered/Not Resolved]
  - Malaise [Not Recovered/Not Resolved]

NARRATIVE: CASE EVENT DATE: 202103
